FAERS Safety Report 15687092 (Version 3)
Quarter: 2019Q1

REPORT INFORMATION
  Report Type: Report from Study
  Country: US (occurrence: US)
  Receive Date: 20181204
  Receipt Date: 20190204
  Transmission Date: 20190417
  Serious: Yes (Hospitalization, Other)
  Sender: FDA-Public Use
  Company Number: PHEH2018US050043

PATIENT
  Sex: Female

DRUGS (1)
  1. ENTRESTO [Suspect]
     Active Substance: SACUBITRIL\VALSARTAN
     Indication: PRODUCT USED FOR UNKNOWN INDICATION
     Dosage: UNK
     Route: 048

REACTIONS (7)
  - Viral infection [Unknown]
  - Malaise [Unknown]
  - Nasopharyngitis [Unknown]
  - Alopecia [Unknown]
  - Dysentery [Unknown]
  - Dysphagia [Unknown]
  - Diverticulitis [Unknown]
